FAERS Safety Report 15596746 (Version 1)
Quarter: 2018Q4

REPORT INFORMATION
  Report Type: Spontaneous
  Country: JP (occurrence: JP)
  Receive Date: 20181108
  Receipt Date: 20181108
  Transmission Date: 20190205
  Serious: Yes (Death, Other)
  Sender: FDA-Public Use
  Company Number: JP-ROCHE-2211072

PATIENT
  Age: 80 Year
  Sex: Male

DRUGS (6)
  1. RITUXAN [Suspect]
     Active Substance: RITUXIMAB
     Indication: B-CELL UNCLASSIFIABLE LYMPHOMA HIGH GRADE
     Route: 041
     Dates: start: 20171001
  2. VINCRISTINE SULFATE. [Concomitant]
     Active Substance: VINCRISTINE SULFATE
     Indication: B-CELL UNCLASSIFIABLE LYMPHOMA HIGH GRADE
     Route: 065
     Dates: start: 201710
  3. ETOPOSIDE. [Concomitant]
     Active Substance: ETOPOSIDE
     Indication: B-CELL UNCLASSIFIABLE LYMPHOMA HIGH GRADE
     Route: 065
     Dates: start: 201710
  4. CYCLOPHOSPHAMIDE. [Concomitant]
     Active Substance: CYCLOPHOSPHAMIDE
     Indication: B-CELL UNCLASSIFIABLE LYMPHOMA HIGH GRADE
     Route: 065
     Dates: start: 201710
  5. PREDNISOLONE. [Concomitant]
     Active Substance: PREDNISOLONE
     Indication: B-CELL UNCLASSIFIABLE LYMPHOMA HIGH GRADE
     Route: 065
     Dates: start: 201710
  6. DOXORUBICIN HYDROCHLORIDE. [Concomitant]
     Active Substance: DOXORUBICIN HYDROCHLORIDE
     Indication: B-CELL UNCLASSIFIABLE LYMPHOMA HIGH GRADE
     Route: 065
     Dates: start: 201710

REACTIONS (2)
  - Sepsis [Fatal]
  - Bone marrow failure [Unknown]
